FAERS Safety Report 4483778-0 (Version None)
Quarter: 2004Q4

REPORT INFORMATION
  Report Type: 
  Country: None (occurrence: None)
  Receive Date: 20041025
  Receipt Date: 20041015
  Transmission Date: 20050328
  Serious: Yes (Hospitalization)
  Sender: FDA-Public Use
  Company Number: NL-ABBOTT-04P-114-0277767-00

PATIENT
  Sex: Male

DRUGS (3)
  1. DEPAKINE SOLUTION [Suspect]
     Indication: EPILEPSY
     Route: 048
     Dates: start: 20040922
  2. DEPAKINE SYRUP [Suspect]
     Indication: EPILEPSY
     Route: 048
     Dates: start: 20040101
  3. LAMOTRIGINE [Concomitant]
     Indication: EPILEPSY
     Route: 048
     Dates: start: 20040922

REACTIONS (1)
  - STATUS EPILEPTICUS [None]
